FAERS Safety Report 9022092 (Version 2)
Quarter: 2013Q1

REPORT INFORMATION
  Report Type: Spontaneous
  Country: FR (occurrence: FR)
  Receive Date: 20130118
  Receipt Date: 20130225
  Transmission Date: 20140127
  Serious: Yes (Hospitalization, Disabling)
  Sender: FDA-Public Use
  Company Number: FR-GLAXOSMITHKLINE-B0858018A

PATIENT
  Age: 21 Year
  Sex: Male

DRUGS (10)
  1. ATRIANCE [Suspect]
     Indication: ACUTE LYMPHOCYTIC LEUKAEMIA
     Route: 042
     Dates: start: 20121027, end: 20121119
  2. METHOTREXATE [Suspect]
     Indication: ACUTE LYMPHOCYTIC LEUKAEMIA
     Route: 037
  3. CYTARABINE [Concomitant]
     Indication: ACUTE LYMPHOCYTIC LEUKAEMIA
     Route: 037
  4. CYCLOPHOSPHAMIDE [Concomitant]
     Indication: ACUTE LYMPHOCYTIC LEUKAEMIA
  5. ETOPOSIDE [Concomitant]
     Indication: ACUTE LYMPHOCYTIC LEUKAEMIA
  6. ZELITREX [Concomitant]
     Route: 048
  7. BACTRIM FORTE [Concomitant]
     Route: 048
  8. INEXIUM [Concomitant]
     Route: 048
  9. HEPARINE [Concomitant]
  10. GRANOCYTE [Concomitant]
     Route: 042

REACTIONS (9)
  - Conus medullaris syndrome [Not Recovered/Not Resolved]
  - Spinal cord ischaemia [Not Recovered/Not Resolved]
  - Paraplegia [Not Recovered/Not Resolved]
  - Paraparesis [Not Recovered/Not Resolved]
  - Muscular weakness [Not Recovered/Not Resolved]
  - Sensory loss [Not Recovered/Not Resolved]
  - Ataxia [Not Recovered/Not Resolved]
  - Urinary retention [Not Recovered/Not Resolved]
  - Extensor plantar response [Not Recovered/Not Resolved]
